FAERS Safety Report 6955626-8 (Version None)
Quarter: 2010Q3

REPORT INFORMATION
  Report Type: 
  Country: None (occurrence: None)
  Receive Date: 20100830
  Receipt Date: 20100820
  Transmission Date: 20110219
  Serious: Yes (Other)
  Sender: FDA-Public Use
  Company Number: GB-PFIZER INC-2010095759

PATIENT
  Sex: Male

DRUGS (1)
  1. LIPITOR [Suspect]
     Indication: BLOOD PRESSURE
     Dosage: 20 MG, 1X/DAY
     Route: 048

REACTIONS (1)
  - TONGUE DISCOLOURATION [None]
